FAERS Safety Report 16997330 (Version 1)
Quarter: 2019Q4

REPORT INFORMATION
  Report Type: Spontaneous
  Country: US (occurrence: US)
  Receive Date: 20191106
  Receipt Date: 20191106
  Transmission Date: 20200122
  Serious: No
  Sender: FDA-Public Use
  Company Number: US-ELI_LILLY_AND_COMPANY-US201910005613

PATIENT
  Sex: Female
  Weight: 81.65 kg

DRUGS (2)
  1. TRULICITY [Suspect]
     Active Substance: DULAGLUTIDE
     Indication: DIABETES MELLITUS
     Dosage: UNK UNK, UNKNOWN
     Route: 065
  2. LYRICA [Suspect]
     Active Substance: PREGABALIN
     Indication: DIABETIC NEUROPATHY
     Dosage: 200 MG, TID
     Route: 048
     Dates: start: 2014

REACTIONS (4)
  - Somnolence [Unknown]
  - Pain [Unknown]
  - Blood glucose decreased [Unknown]
  - Nausea [Recovered/Resolved]
